FAERS Safety Report 25815763 (Version 1)
Quarter: 2025Q3

REPORT INFORMATION
  Report Type: Spontaneous
  Country: US (occurrence: US)
  Receive Date: 20250918
  Receipt Date: 20250918
  Transmission Date: 20251021
  Serious: Yes (Other)
  Sender: CATALYST PHARMA
  Company Number: US-CATALYSTPHARMACEUTICALPARTNERS-US-CATA-24-00863

PATIENT
  Sex: Female

DRUGS (3)
  1. FYCOMPA [Suspect]
     Active Substance: PERAMPANEL
     Indication: Focal dyscognitive seizures
     Route: 065
  2. FYCOMPA [Suspect]
     Active Substance: PERAMPANEL
     Route: 065
     Dates: end: 2024
  3. XCOPRI [Concomitant]
     Active Substance: CENOBAMATE
     Indication: Focal dyscognitive seizures
     Route: 065
     Dates: start: 2024

REACTIONS (2)
  - Suicidal ideation [Recovered/Resolved]
  - Personality change [Recovered/Resolved]
